FAERS Safety Report 11457566 (Version 4)
Quarter: 2016Q1

REPORT INFORMATION
  Report Type: Report from Study
  Country: CA (occurrence: CA)
  Receive Date: 20150904
  Receipt Date: 20160312
  Transmission Date: 20160525
  Serious: Yes (Hospitalization)
  Sender: FDA-Public Use
  Company Number: CA-AMGEN-CANSL2015088859

PATIENT
  Age: 74 Year
  Sex: Female
  Weight: 50.79 kg

DRUGS (20)
  1. FUROSEMIDE. [Concomitant]
     Active Substance: FUROSEMIDE
     Dosage: 40 MG, QD
  2. BABY ASPIRIN [Concomitant]
     Active Substance: ASPIRIN
     Dosage: 81 UNK, QD
  3. HYDROMORPH CONTIN [Concomitant]
     Active Substance: HYDROMORPHONE
     Dosage: 3 MG AND 6 MG, BID
  4. AVAPRO [Concomitant]
     Active Substance: IRBESARTAN
     Dosage: 300 MG, QD
  5. METOPROLOL. [Concomitant]
     Active Substance: METOPROLOL
     Dosage: 0.5 DF, QD
  6. CALTRATE PLUS                      /01438001/ [Concomitant]
     Active Substance: CALCIUM\CHOLECALCIFEROL\COPPER\MAGNESIUM\MANGANESE\ZINC
     Dosage: UNK UNK, QD
  7. LASIX [Concomitant]
     Active Substance: FUROSEMIDE
     Dosage: 40 UNK, UNK
  8. LEVOCARB [Suspect]
     Active Substance: CARBIDOPA\LEVODOPA
     Indication: MUSCLE SPASMS
     Route: 065
  9. ALLOPURINOL. [Concomitant]
     Active Substance: ALLOPURINOL
     Dosage: 100 UNK, UNK
     Dates: end: 201506
  10. LOSAR                              /01121602/ [Concomitant]
     Dosage: 20 UNK, UNK
  11. CEFPROZIL. [Suspect]
     Active Substance: CEFPROZIL
     Indication: PRODUCT USED FOR UNKNOWN INDICATION
     Dosage: UNK
     Route: 065
     Dates: start: 201402
  12. ROBAXIN [Concomitant]
     Active Substance: METHOCARBAMOL
     Dosage: UNK
     Dates: end: 201506
  13. PROLIA [Suspect]
     Active Substance: DENOSUMAB
     Indication: OSTEOPOROSIS POSTMENOPAUSAL
     Dosage: 60 MG, Q6MO
     Route: 058
     Dates: start: 20120703
  14. METAMUCIL [Concomitant]
     Active Substance: PLANTAGO SEED
     Indication: GASTROINTESTINAL MOTILITY DISORDER
  15. NORVASC [Concomitant]
     Active Substance: AMLODIPINE BESYLATE
     Dosage: 5 UNK, BID
  16. DILAUDID [Concomitant]
     Active Substance: HYDROMORPHONE HYDROCHLORIDE
  17. ASA EC [Concomitant]
     Dosage: 81 UNK, UNK
  18. AMANTIN [Concomitant]
     Dosage: 9 MG, BID
  19. LYRICA [Suspect]
     Active Substance: PREGABALIN
     Indication: NEUROPATHY PERIPHERAL
     Dosage: UNK
     Route: 065
     Dates: start: 2013
  20. AMLODIPINE                         /00972402/ [Concomitant]
     Active Substance: AMLODIPINE BESYLATE
     Dosage: 5 MG, BID

REACTIONS (21)
  - Scab [Unknown]
  - Muscle spasms [Not Recovered/Not Resolved]
  - Adverse reaction [Not Recovered/Not Resolved]
  - Erythema [Unknown]
  - Rash [Unknown]
  - Renal disorder [Not Recovered/Not Resolved]
  - Unevaluable event [Unknown]
  - Asthenia [Unknown]
  - Restlessness [Unknown]
  - Blood pressure increased [Unknown]
  - Swelling [Unknown]
  - Hypersensitivity [Recovering/Resolving]
  - Pollakiuria [Unknown]
  - Joint swelling [Unknown]
  - Vomiting [Unknown]
  - Skin exfoliation [Unknown]
  - Blood iron decreased [Unknown]
  - Pruritus [Unknown]
  - Diarrhoea [Unknown]
  - Hypotension [Not Recovered/Not Resolved]
  - Anxiety [Unknown]

NARRATIVE: CASE EVENT DATE: 2013
